FAERS Safety Report 20308737 (Version 1)
Quarter: 2022Q1

REPORT INFORMATION
  Report Type: Spontaneous
  Country: US (occurrence: None)
  Receive Date: 20220107
  Receipt Date: 20220107
  Transmission Date: 20220424
  Serious: No
  Sender: FDA-Public Use
  Company Number: US-Merz Pharmaceuticals GmbH-21-04384

PATIENT
  Age: 83 Year
  Sex: Male

DRUGS (3)
  1. ASCLERA [Suspect]
     Active Substance: POLIDOCANOL
     Indication: Sclerotherapy
     Dates: start: 20211101, end: 20211101
  2. ASCLERA [Suspect]
     Active Substance: POLIDOCANOL
     Dates: start: 20211102, end: 20211102
  3. ASCLERA [Suspect]
     Active Substance: POLIDOCANOL
     Dates: start: 20211108, end: 20211108

REACTIONS (3)
  - Dizziness [Recovered/Resolved]
  - Nausea [Recovered/Resolved]
  - Vomiting [Recovered/Resolved]

NARRATIVE: CASE EVENT DATE: 20211101
